FAERS Safety Report 5145176-6 (Version None)
Quarter: 2006Q4

REPORT INFORMATION
  Report Type: 
  Country: None (occurrence: None)
  Receive Date: 20061107
  Receipt Date: 20061027
  Transmission Date: 20070319
  Serious: Yes (Other)
  Sender: FDA-Public Use
  Company Number: US-ELI_LILLY_AND_COMPANY-US200610005193

PATIENT
  Age: 53 Year
  Sex: Female

DRUGS (9)
  1. FORTEO [Suspect]
     Indication: OSTEOPOROSIS
     Dates: start: 20060920
  2. TRILEPTAL [Concomitant]
  3. DICLOFENAC [Concomitant]
  4. POTASSIUM ACETATE [Concomitant]
  5. TORSEMIDE [Concomitant]
  6. DOXEPIN HCL [Concomitant]
  7. DULCOLAX [Concomitant]
  8. CALCIUM [Concomitant]
  9. VITAMIN CAP [Concomitant]

REACTIONS (1)
  - CONVULSION [None]
